FAERS Safety Report 6700961-1 (Version None)
Quarter: 2010Q2

REPORT INFORMATION
  Report Type: 
  Country: None (occurrence: None)
  Receive Date: 20100428
  Receipt Date: 20100416
  Transmission Date: 20101027
  Serious: Yes (Hospitalization)
  Sender: FDA-Public Use
  Company Number: GB-WYE-H13699710

PATIENT
  Age: 78 Year
  Sex: Female

DRUGS (13)
  1. PANTOPRAZOLE [Suspect]
     Indication: BARRETT'S OESOPHAGUS
     Dosage: UNKNOWN
  2. PANTOPRAZOLE [Suspect]
     Indication: GASTROOESOPHAGEAL REFLUX DISEASE
     Dosage: 40 MG/DAY FROM WEEK 26 TO WEEK 40
     Dates: start: 20080101, end: 20080101
  3. PANTOPRAZOLE [Suspect]
     Dosage: 40 MG/DAY FROM WEEK 47 TO WEEK 51
     Dates: start: 20080101, end: 20080101
  4. PANTOPRAZOLE [Suspect]
     Dosage: RESTARTED AFTER CIMETIDINE, DOSE UNKNOWN
  5. OMEPRAZOLE [Suspect]
     Indication: GASTROOESOPHAGEAL REFLUX DISEASE
     Dosage: 20-40 MG DAILY
     Dates: start: 19990101
  6. OMEPRAZOLE [Suspect]
     Indication: BARRETT'S OESOPHAGUS
     Dates: start: 20080101, end: 20080101
  7. RANITIDINE [Concomitant]
     Indication: BARRETT'S OESOPHAGUS
     Dates: start: 20080101, end: 20080101
  8. LEKOVIT CA [Concomitant]
     Route: 048
  9. FUROSEMIDE [Concomitant]
     Indication: HYPERTENSION
     Dosage: 20-40 MG DAILY
     Dates: start: 20050101
  10. BENDROFLUMETHIAZIDE [Concomitant]
     Dates: start: 20010101
  11. ESOMEPRAZOLE [Suspect]
     Indication: BARRETT'S OESOPHAGUS
     Dosage: UNKNOWN
  12. ESOMEPRAZOLE [Suspect]
     Indication: GASTROOESOPHAGEAL REFLUX DISEASE
     Dates: start: 20080101, end: 20080101
  13. ALFACALCIDOL [Concomitant]
     Dosage: 250 NANGM DAILY

REACTIONS (12)
  - ABDOMINAL PAIN [None]
  - ARTHRALGIA [None]
  - CHEST PAIN [None]
  - CIRCULATORY COLLAPSE [None]
  - GAIT DISTURBANCE [None]
  - HYPOCALCAEMIA [None]
  - HYPOMAGNESAEMIA [None]
  - LETHARGY [None]
  - MUSCLE SPASMS [None]
  - PARAESTHESIA [None]
  - RASH PRURITIC [None]
  - TETANY [None]
